FAERS Safety Report 5120383-7 (Version None)
Quarter: 2006Q4

REPORT INFORMATION
  Report Type: 
  Country: None (occurrence: None)
  Receive Date: 20061004
  Receipt Date: 20060616
  Transmission Date: 20070319
  Serious: Yes (Other)
  Sender: FDA-Public Use
  Company Number: US-GLAXOSMITHKLINE-A0609718A

PATIENT
  Age: 84 Year
  Sex: Female
  Weight: 59.1 kg

DRUGS (6)
  1. COREG [Suspect]
     Route: 048
     Dates: start: 20060225, end: 20060502
  2. FUROSEMIDE [Suspect]
     Dates: start: 20030101
  3. DIOVAN [Suspect]
     Dosage: 80MG UNKNOWN
     Route: 065
     Dates: start: 20050901
  4. DIGOXIN [Concomitant]
     Route: 048
  5. WARFARIN SODIUM [Concomitant]
     Indication: ATRIAL FIBRILLATION
     Route: 048
     Dates: start: 20031001
  6. OXYBUTYNIN [Concomitant]
     Indication: INCONTINENCE
     Route: 048
     Dates: start: 20031001

REACTIONS (3)
  - DIPLOPIA [None]
  - EYELID PTOSIS [None]
  - MYASTHENIA GRAVIS [None]
